FAERS Safety Report 5594818-X (Version None)
Quarter: 2008Q1

REPORT INFORMATION
  Report Type: 
  Country: None (occurrence: None)
  Receive Date: 20080117
  Receipt Date: 20080114
  Transmission Date: 20080703
  Serious: Yes (Hospitalization)
  Sender: FDA-Public Use
  Company Number: B0503859A

PATIENT
  Sex: Female

DRUGS (7)
  1. AVANDIA [Suspect]
  2. PAROXETINE [Suspect]
  3. GLUCOVANCE [Suspect]
  4. MONURIL [Suspect]
     Indication: URINARY TRACT INFECTION
  5. ZOCOR [Concomitant]
  6. FERROGRADUMET [Concomitant]
  7. OMEPRAZOLE [Concomitant]

REACTIONS (1)
  - THROMBOCYTOPENIA [None]
